FAERS Safety Report 5655275-8 (Version None)
Quarter: 2008Q1

REPORT INFORMATION
  Report Type: 
  Country: None (occurrence: None)
  Receive Date: 20080307
  Receipt Date: 20080303
  Transmission Date: 20080703
  Serious: Yes (Other)
  Sender: FDA-Public Use
  Company Number: B0510388A

PATIENT

DRUGS (2)
  1. SERETIDE [Suspect]
     Indication: EMPHYSEMA
     Dosage: 2PUFF FOUR TIMES PER DAY
     Route: 055
  2. SEREVENT [Suspect]
     Indication: EMPHYSEMA
     Dosage: 2PUFF TWICE PER DAY
     Route: 055

REACTIONS (1)
  - INTENTIONAL OVERDOSE [None]
